FAERS Safety Report 6703924-5 (Version None)
Quarter: 2010Q2

REPORT INFORMATION
  Report Type: 
  Country: None (occurrence: None)
  Receive Date: 20100423
  Receipt Date: 20080908
  Transmission Date: 20101027
  Serious: Yes (Life-Threatening, Hospitalization, Other)
  Sender: FDA-Public Use
  Company Number: SPV1-2008-01841

PATIENT
  Age: 17 Year
  Sex: Male
  Weight: 60.1 kg

DRUGS (2)
  1. VYVANSE [Suspect]
     Indication: ATTENTION DEFICIT/HYPERACTIVITY DISORDER
     Dosage: 70 MG, 1X/DAY:QD, ORAL
     Route: 048
     Dates: start: 20080218, end: 20080825
  2. CELEXA [Concomitant]

REACTIONS (7)
  - ABNORMAL BEHAVIOUR [None]
  - BRAIN OEDEMA [None]
  - DRUG ABUSE [None]
  - GRAND MAL CONVULSION [None]
  - INTENTIONAL OVERDOSE [None]
  - LOSS OF CONSCIOUSNESS [None]
  - OFF LABEL USE [None]
